FAERS Safety Report 19524443 (Version 1)
Quarter: 2021Q3

REPORT INFORMATION
  Report Type: Other
  Country: NL (occurrence: NL)
  Receive Date: 20210713
  Receipt Date: 20210713
  Transmission Date: 20211014
  Serious: Yes (Disabling, Other)
  Sender: FDA-Public Use
  Company Number: NL-APOTEX-2021AP017269

PATIENT
  Sex: Male

DRUGS (3)
  1. PAROXETINE TABLET [Suspect]
     Active Substance: PAROXETINE
     Indication: ANXIETY
     Dosage: 20 MILLIGRAM, QD
     Route: 065
     Dates: start: 201901
  2. PAROXETINE TABLET [Suspect]
     Active Substance: PAROXETINE
     Dosage: 1 DOSAGE FORM
     Route: 065
  3. PAROXETINE TABLET [Suspect]
     Active Substance: PAROXETINE
     Indication: ANXIETY
     Dosage: 40 MILLIGRAM, QD
     Route: 065
     Dates: start: 2019

REACTIONS (6)
  - Depressed level of consciousness [Recovering/Resolving]
  - Listless [Recovering/Resolving]
  - Paranoia [Recovering/Resolving]
  - Weight increased [Recovered/Resolved]
  - Aggression [Recovering/Resolving]
  - Insomnia [Recovered/Resolved]
